FAERS Safety Report 24466129 (Version 1)
Quarter: 2024Q4

REPORT INFORMATION
  Report Type: Report from Study
  Country: US (occurrence: US)
  Receive Date: 20241018
  Receipt Date: 20241018
  Transmission Date: 20250115
  Serious: No
  Sender: ROCHE
  Company Number: US-ROCHE-3541751

PATIENT
  Age: 58 Year
  Sex: Female
  Weight: 99.79 kg

DRUGS (29)
  1. XOLAIR [Suspect]
     Active Substance: OMALIZUMAB
     Indication: Asthma
     Route: 058
     Dates: start: 20220204
  2. XOLAIR [Suspect]
     Active Substance: OMALIZUMAB
     Dosage: MOST RECENT DOSE DATE
     Route: 058
     Dates: start: 20240401
  3. ATORVASTATIN [Concomitant]
     Active Substance: ATORVASTATIN
     Dosage: 10 MG TAB
     Dates: start: 20210406
  4. ATORVASTATIN [Concomitant]
     Active Substance: ATORVASTATIN
     Dates: start: 20240116
  5. BUDESONIDE\FORMOTEROL [Concomitant]
     Active Substance: BUDESONIDE\FORMOTEROL
     Dosage: 160 MCG, INHALE 2 PUFFS
     Route: 065
     Dates: start: 20240315
  6. CEPHALEXIN [Concomitant]
     Active Substance: CEPHALEXIN
     Dates: start: 20240219
  7. DEXAMETHASONE [Concomitant]
     Active Substance: DEXAMETHASONE
  8. VITAMIN D2 [Concomitant]
     Active Substance: ERGOCALCIFEROL
     Dosage: 1250 MCG
  9. FAMOTIDINE [Concomitant]
     Active Substance: FAMOTIDINE
     Dates: start: 20240221
  10. FOLIC ACID [Concomitant]
     Active Substance: FOLIC ACID
     Dates: start: 20240205
  11. GAVILYTE G [Concomitant]
     Active Substance: POLYETHYLENE GLYCOL 3350\POTASSIUM CHLORIDE\SODIUM BICARBONATE\SODIUM CHLORIDE\SODIUM SULFATE
     Dates: start: 20231115
  12. GAVILYTE G [Concomitant]
     Active Substance: POLYETHYLENE GLYCOL 3350\POTASSIUM CHLORIDE\SODIUM BICARBONATE\SODIUM CHLORIDE\SODIUM SULFATE
     Dates: start: 20231115
  13. GAVILYTE G [Concomitant]
     Active Substance: POLYETHYLENE GLYCOL 3350\POTASSIUM CHLORIDE\SODIUM BICARBONATE\SODIUM CHLORIDE\SODIUM SULFATE
     Dates: start: 20231115
  14. GAVILYTE G [Concomitant]
     Active Substance: POLYETHYLENE GLYCOL 3350\POTASSIUM CHLORIDE\SODIUM BICARBONATE\SODIUM CHLORIDE\SODIUM SULFATE
     Dates: start: 20231115
  15. LEVALBUTEROL [Concomitant]
     Active Substance: LEVALBUTEROL
     Indication: Dyspnoea
     Dosage: 0.63 MG/3ML SVN AS NEEDLE
     Dates: start: 20220112
  16. LEVALBUTEROL [Concomitant]
     Active Substance: LEVALBUTEROL
     Indication: Cough
     Dosage: 1.25MG/3ML SOLUTION FOR NEBULLISATION
     Dates: start: 20240315
  17. LEVALBUTEROL [Concomitant]
     Active Substance: LEVALBUTEROL
     Indication: Wheezing
  18. LEVOTHYROXINE [Concomitant]
     Active Substance: LEVOTHYROXINE
     Dosage: 125 MCG
     Route: 048
     Dates: start: 20220216
  19. LISINOPRIL [Concomitant]
     Active Substance: LISINOPRIL
     Dates: start: 20231212
  20. OMEPRAZOLE [Concomitant]
     Active Substance: OMEPRAZOLE
     Dates: start: 20220421
  21. OXYBUTYNIN CHLORIDE [Concomitant]
     Active Substance: OXYBUTYNIN CHLORIDE
     Dates: start: 20200423
  22. PREDNISONE [Concomitant]
     Active Substance: PREDNISONE
     Dates: start: 20240315
  23. PREDNISONE [Concomitant]
     Active Substance: PREDNISONE
     Dates: start: 20240326
  24. SUMATRIPTAN [Concomitant]
     Active Substance: SUMATRIPTAN
     Dates: start: 20240122
  25. TOLTERODINE [Concomitant]
     Active Substance: TOLTERODINE
     Dates: start: 20231211
  26. TRAMADOL [Concomitant]
     Active Substance: TRAMADOL
     Dates: start: 20240219
  27. GLIPIZIDE [Concomitant]
     Active Substance: GLIPIZIDE
     Dates: start: 20240315
  28. GLIPIZIDE [Concomitant]
     Active Substance: GLIPIZIDE
     Dosage: TABLET EXTENDED RELEASE.
     Dates: start: 20210608
  29. TRAZODONE [Concomitant]
     Active Substance: TRAZODONE HYDROCHLORIDE
     Dosage: 2 TABLETS BY MOUTH EVERY NIGHT AT BEDTIME AS NEEDED.
     Route: 048
     Dates: start: 20240221

REACTIONS (9)
  - Fatigue [Unknown]
  - Cough [Unknown]
  - Joint swelling [Unknown]
  - Myalgia [Unknown]
  - Insomnia [Unknown]
  - Obesity [Unknown]
  - Seasonal allergy [Unknown]
  - Dyspnoea [Unknown]
  - Breath sounds abnormal [Unknown]
